FAERS Safety Report 11992982 (Version 1)
Quarter: 2016Q1

REPORT INFORMATION
  Report Type: Spontaneous
  Country: US (occurrence: None)
  Receive Date: 20160202
  Receipt Date: 20160202
  Transmission Date: 20160526
  Serious: Yes (Disabling)
  Sender: FDA-Public Use
  Company Number: None

PATIENT
  Age: 48 Year
  Sex: Female
  Weight: 109.77 kg

DRUGS (4)
  1. ALBUTEROL. [Concomitant]
     Active Substance: ALBUTEROL
  2. CABERGOLINE. [Concomitant]
     Active Substance: CABERGOLINE
  3. DEXILANT [Suspect]
     Active Substance: DEXLANSOPRAZOLE
     Indication: GASTROOESOPHAGEAL REFLUX DISEASE
     Dosage: 1 PILL  ONCE DAILY TAKEN BY MOUTH
     Route: 048
     Dates: start: 20160127, end: 20160129
  4. VITAMIN D [Concomitant]
     Active Substance: CHOLECALCIFEROL

REACTIONS (4)
  - Throat irritation [None]
  - Oropharyngeal pain [None]
  - Respiratory tract infection [None]
  - Diarrhoea [None]

NARRATIVE: CASE EVENT DATE: 20160128
